FAERS Safety Report 5662433-5 (Version None)
Quarter: 2008Q1

REPORT INFORMATION
  Report Type: 
  Country: None (occurrence: None)
  Receive Date: 20080313
  Receipt Date: 20080306
  Transmission Date: 20080703
  Serious: Yes (Other)
  Sender: FDA-Public Use
  Company Number: GB-BAYER-200814709GPV

PATIENT
  Age: 27 Year
  Sex: Female

DRUGS (6)
  1. NIFEDIPINE [Suspect]
     Indication: HYPERTENSION
  2. FUROSEMIDE [Suspect]
     Indication: DRUG USE FOR UNKNOWN INDICATION
     Route: 065
  3. AMOXICILLIN + CLAVULANATE POTASSIUM [Suspect]
     Indication: DRUG USE FOR UNKNOWN INDICATION
     Route: 065
  4. ENOXAPARIN [Suspect]
     Indication: DRUG USE FOR UNKNOWN INDICATION
     Dosage: TOTAL DAILY DOSE: 80 MG
     Route: 065
  5. STEROIDS [Suspect]
     Indication: FOETAL THERAPEUTIC PROCEDURE
     Route: 065
  6. BRONOCHODILATOR [Concomitant]
     Indication: ASTHMA
     Route: 055

REACTIONS (1)
  - PERIPARTUM CARDIOMYOPATHY [None]
